FAERS Safety Report 9738402 (Version 2)
Quarter: 2013Q4

REPORT INFORMATION
  Report Type: Spontaneous
  Country: BR (occurrence: BR)
  Receive Date: 20131208
  Receipt Date: 20131230
  Transmission Date: 20140711
  Serious: Yes (Disabling, Other)
  Sender: FDA-Public Use
  Company Number: BR-ROCHE-1312098

PATIENT
  Age: 2 Year
  Sex: Female
  Weight: 13 kg

DRUGS (3)
  1. RIVOTRIL [Suspect]
     Indication: PRODUCT USED FOR UNKNOWN INDICATION
     Route: 065
     Dates: start: 20131128, end: 20131128
  2. IBUPROFEN [Concomitant]
     Indication: INFLUENZA
  3. MUCOSOLVAN [Concomitant]

REACTIONS (9)
  - Dysstasia [Recovered/Resolved]
  - Accidental exposure to product [Unknown]
  - Toxicity to various agents [Recovered/Resolved]
  - Nervousness [Not Recovered/Not Resolved]
  - Insomnia [Recovered/Resolved]
  - Crying [Recovered/Resolved]
  - Hypersomnia [Recovered/Resolved]
  - Somnolence [Recovered/Resolved]
  - Irritability [Recovered/Resolved]
